FAERS Safety Report 7860428-4 (Version None)
Quarter: 2011Q4

REPORT INFORMATION
  Report Type: 
  Country: None (occurrence: None)
  Receive Date: 20111027
  Receipt Date: 20111020
  Transmission Date: 20120403
  Serious: Yes (Death)
  Sender: FDA-Public Use
  Company Number: PHHY2011PH92250

PATIENT
  Age: 34 Year
  Sex: Male

DRUGS (1)
  1. TASIGNA [Suspect]
     Dosage: UNK UKN, UNK

REACTIONS (1)
  - SEPSIS [None]
